FAERS Safety Report 6257544-X (Version None)
Quarter: 2009Q3

REPORT INFORMATION
  Report Type: 
  Country: None (occurrence: None)
  Receive Date: 20090706
  Receipt Date: 20090624
  Transmission Date: 20100115
  Serious: Yes (Other)
  Sender: FDA-Public Use
  Company Number: PHHY2009NL25171

PATIENT
  Age: 57 Year
  Sex: Male

DRUGS (6)
  1. CYCLOSPORINE [Suspect]
     Indication: STEM CELL TRANSPLANT
  2. MYCOPHENOLATE MOFETIL [Concomitant]
  3. PREDNISOLONE [Concomitant]
  4. FLUDARABINE PHOSPHATE [Concomitant]
     Dosage: 90 MG/M2, UNK
     Route: 042
     Dates: start: 20060601, end: 20061001
  5. ANTITHYMOCYTE IMMUNOGLOBULIN [Concomitant]
     Dosage: 8 MG/KG
     Route: 042
  6. IRRADIATION [Concomitant]
     Dosage: 2 GY

REACTIONS (12)
  - BK VIRUS INFECTION [None]
  - CREATININE RENAL CLEARANCE DECREASED [None]
  - GRAFT VERSUS HOST DISEASE [None]
  - HAEMODIALYSIS [None]
  - HYPOGAMMAGLOBULINAEMIA [None]
  - JC VIRUS INFECTION [None]
  - NEPHROPATHY TOXIC [None]
  - POLYOMAVIRUS-ASSOCIATED NEPHROPATHY [None]
  - RENAL FAILURE [None]
  - RENAL IMPAIRMENT [None]
  - RENAL ISCHAEMIA [None]
  - RENAL TUBULAR NECROSIS [None]
